FAERS Safety Report 11206551 (Version 1)
Quarter: 2015Q2

REPORT INFORMATION
  Report Type: Spontaneous
  Country: US (occurrence: None)
  Receive Date: 20150619
  Receipt Date: 20150619
  Transmission Date: 20150821
  Serious: Yes (Hospitalization)
  Sender: FDA-Public Use
  Company Number: None

PATIENT
  Age: 57 Year
  Sex: Female
  Weight: 65.8 kg

DRUGS (4)
  1. ALTACE [Concomitant]
     Active Substance: RAMIPRIL
  2. CARVEDILOL. [Concomitant]
     Active Substance: CARVEDILOL
  3. IBUPROFEN. [Suspect]
     Active Substance: IBUPROFEN
     Indication: OSTEOARTHRITIS
     Dosage: CHRONIC WITH RECENT INCREASE
     Route: 048
  4. MVI [Concomitant]
     Active Substance: VITAMINS

REACTIONS (2)
  - Duodenal ulcer [None]
  - Iron deficiency anaemia [None]

NARRATIVE: CASE EVENT DATE: 20150218
